FAERS Safety Report 6847561-0 (Version None)
Quarter: 2010Q3

REPORT INFORMATION
  Report Type: 
  Country: None (occurrence: None)
  Receive Date: 20100714
  Receipt Date: 20100702
  Transmission Date: 20110219
  Serious: Yes (Hospitalization)
  Sender: FDA-Public Use
  Company Number: 236346K09USA

PATIENT
  Age: 38 Year
  Sex: Female

DRUGS (6)
  1. REBIF [Suspect]
     Indication: MULTIPLE SCLEROSIS
     Dosage: 22 MCG, 3 IN 1 WK, SUBCUTANEOUS
     Route: 058
     Dates: end: 20090604
  2. BACLOFEN [Concomitant]
  3. TRAZODONE HCL [Concomitant]
  4. SINEMET [Concomitant]
  5. METHADONE HCL [Concomitant]
  6. HYDROXYZINE PAMOATE [Concomitant]

REACTIONS (9)
  - ALTERED STATE OF CONSCIOUSNESS [None]
  - ASTHENIA [None]
  - BLEPHAROSPASM [None]
  - DEHYDRATION [None]
  - DEPRESSION [None]
  - MALNUTRITION [None]
  - MOTOR DYSFUNCTION [None]
  - MULTIPLE SCLEROSIS RELAPSE [None]
  - WEIGHT DECREASED [None]
